FAERS Safety Report 18603530 (Version 1)
Quarter: 2020Q4

REPORT INFORMATION
  Report Type: Spontaneous
  Country: US (occurrence: US)
  Receive Date: 20201118
  Receipt Date: 20201118
  Transmission Date: 20210114
  Serious: Yes (Other)
  Sender: FDA-Public Use
  Company Number: None

PATIENT
  Age: 5 Decade
  Sex: Male

DRUGS (2)
  1. DOLUTEGRAVIR SODIUM-LAMIVUDINE [Suspect]
     Active Substance: DOLUTEGRAVIR SODIUM\LAMIVUDINE
     Dosage: ?          OTHER DOSE:50/300MG;?
  2. AZITHROMYCIN ANHYDROUS. [Suspect]
     Active Substance: AZITHROMYCIN ANHYDROUS
     Indication: COVID-19
     Dates: start: 2020

REACTIONS (3)
  - Pneumonia [None]
  - Pneumothorax [None]
  - Respiratory tract infection [None]
